FAERS Safety Report 6281655 (Version 4)
Quarter: 2017Q3

REPORT INFORMATION
  Report Type: Spontaneous
  Country: US (occurrence: US)
  Receive Date: 20061020
  Receipt Date: 20170922
  Transmission Date: 20171128
  Serious: Yes (Death, Hospitalization, Other)
  Sender: FDA-Public Use
  Company Number: US-PFIZER INC-2006125724

PATIENT
  Age: 84 Year
  Sex: Female

DRUGS (2)
  1. CELEBREX [Suspect]
     Active Substance: CELECOXIB
     Indication: PAIN MANAGEMENT
     Dosage: 200 MG, 1X/DAY
     Dates: start: 19990401, end: 19990924
  2. VIOXX [Suspect]
     Active Substance: ROFECOXIB
     Dosage: UNK
     Dates: start: 20000311, end: 20000822

REACTIONS (6)
  - Depression [Unknown]
  - Loss of personal independence in daily activities [Unknown]
  - Ischaemic stroke [Unknown]
  - Cardiac failure [Fatal]
  - Respiratory failure [Fatal]
  - Anxiety [Unknown]

NARRATIVE: CASE EVENT DATE: 20000311
